FAERS Safety Report 7979867-6 (Version None)
Quarter: 2011Q4

REPORT INFORMATION
  Report Type: 
  Country: None (occurrence: None)
  Receive Date: 20111201
  Receipt Date: 20111115
  Transmission Date: 20120403
  Serious: Yes (Other)
  Sender: FDA-Public Use
  Company Number: 2011SP048336

PATIENT
  Age: 45 Year
  Sex: Female

DRUGS (1)
  1. MIRALAX [Suspect]
     Indication: LAXATIVE SUPPORTIVE CARE
     Dosage: QD; PO, PO
     Route: 048
     Dates: start: 20111010, end: 20111011

REACTIONS (5)
  - OEDEMA PERIPHERAL [None]
  - EYE SWELLING [None]
  - SWELLING FACE [None]
  - SWELLING [None]
  - ABDOMINAL DISTENSION [None]
